FAERS Safety Report 7859215-2 (Version None)
Quarter: 2011Q4

REPORT INFORMATION
  Report Type: 
  Country: None (occurrence: None)
  Receive Date: 20111027
  Receipt Date: 20111027
  Transmission Date: 20120403
  Serious: Yes (Other)
  Sender: FDA-Public Use
  Company Number: None

PATIENT
  Age: 13 Year
  Sex: Male
  Weight: 54.2 kg

DRUGS (1)
  1. CEPHALEXIN [Suspect]
     Indication: IMPETIGO
     Dosage: 500MG
     Route: 048
     Dates: start: 20111017, end: 20111019

REACTIONS (1)
  - EPISTAXIS [None]
